FAERS Safety Report 18203999 (Version 4)
Quarter: 2021Q3

REPORT INFORMATION
  Report Type: Spontaneous
  Country: PT (occurrence: PT)
  Receive Date: 20200827
  Receipt Date: 20210709
  Transmission Date: 20211014
  Serious: Yes (Death, Other)
  Sender: FDA-Public Use
  Company Number: PT-AKCEA THERAPEUTICS-2020IS001351

PATIENT
  Age: 61 Year
  Sex: Female

DRUGS (6)
  1. VITAMIN A /00056001/ [Concomitant]
     Active Substance: RETINOL
     Route: 065
     Dates: start: 20200305, end: 20200818
  2. OMEPRAZOLE. [Concomitant]
     Active Substance: OMEPRAZOLE
     Route: 065
  3. TEGSEDI [Suspect]
     Active Substance: INOTERSEN SODIUM
     Indication: HEREDITARY NEUROPATHIC AMYLOIDOSIS
     Route: 058
     Dates: start: 20200305, end: 20200805
  4. ISSD (INTEGRATED SYRINGE SAFETY DEVICE) [Suspect]
     Active Substance: DEVICE
  5. GABAPENTIN. [Concomitant]
     Active Substance: GABAPENTIN
     Route: 065
  6. TEGSEDI [Suspect]
     Active Substance: INOTERSEN SODIUM
     Indication: POLYNEUROPATHY
     Route: 058
     Dates: start: 20200305, end: 20200805

REACTIONS (12)
  - Urinary tract infection [Recovered/Resolved]
  - N-terminal prohormone brain natriuretic peptide increased [Unknown]
  - Face oedema [Recovered/Resolved]
  - Subarachnoid haemorrhage [Unknown]
  - Respiration abnormal [Unknown]
  - Erythema [Recovered/Resolved]
  - Giant cell myocarditis [Fatal]
  - Subdural haemorrhage [Unknown]
  - Fall [Unknown]
  - Snoring [Unknown]
  - Insomnia [Unknown]
  - Cardio-respiratory arrest [Fatal]

NARRATIVE: CASE EVENT DATE: 20200718
